FAERS Safety Report 20432738 (Version 3)
Quarter: 2022Q1

REPORT INFORMATION
  Report Type: Spontaneous
  Country: BR (occurrence: BR)
  Receive Date: 20220204
  Receipt Date: 20220221
  Transmission Date: 20220423
  Serious: Yes (Other)
  Sender: FDA-Public Use
  Company Number: BR-CELLTRION INC.-2022BR001140

PATIENT

DRUGS (1)
  1. TRUXIMA [Suspect]
     Active Substance: RITUXIMAB-ABBS
     Indication: Dermatomyositis
     Dosage: 500MG/50ML APPLYING 1G EVERY 15 DAYS
     Route: 042
     Dates: start: 20220203

REACTIONS (2)
  - Dermatomyositis [Recovered/Resolved]
  - Off label use [Unknown]
